FAERS Safety Report 13892305 (Version 1)
Quarter: 2017Q3

REPORT INFORMATION
  Report Type: Spontaneous
  Country: TW (occurrence: TW)
  Receive Date: 20170822
  Receipt Date: 20170822
  Transmission Date: 20171127
  Serious: Yes (Hospitalization, Other)
  Sender: FDA-Public Use
  Company Number: TW-PFIZER INC-2017318311

PATIENT
  Age: 52 Year
  Sex: Male

DRUGS (1)
  1. SUTENT [Suspect]
     Active Substance: SUNITINIB MALATE
     Indication: RENAL CELL CARCINOMA
     Dosage: 37.5MG, CYCLIC [DAILY (QD) TWO WEEKS ON AND ONE WEEK OFF]
     Route: 048
     Dates: start: 20170106

REACTIONS (6)
  - Diarrhoea [Unknown]
  - Mouth ulceration [Unknown]
  - Mutism [Unknown]
  - Altered state of consciousness [Unknown]
  - Thrombocytopenia [Unknown]
  - Epistaxis [Unknown]

NARRATIVE: CASE EVENT DATE: 2017
